FAERS Safety Report 21987886 (Version 1)
Quarter: 2023Q1

REPORT INFORMATION
  Report Type: Spontaneous
  Country: CH (occurrence: CH)
  Receive Date: 20230214
  Receipt Date: 20230214
  Transmission Date: 20230418
  Serious: Yes (Other)
  Sender: FDA-Public Use
  Company Number: CH-ABBVIE-4306704

PATIENT
  Age: 56 Year
  Sex: Male

DRUGS (7)
  1. GLECAPREVIR\PIBRENTASVIR [Suspect]
     Active Substance: GLECAPREVIR\PIBRENTASVIR
     Indication: Chronic hepatitis C
     Route: 048
     Dates: start: 20220123, end: 20220420
  2. VOSEVI [Suspect]
     Active Substance: SOFOSBUVIR\VELPATASVIR\VOXILAPREVIR
     Indication: Chronic hepatitis C
  3. Fluticasone Furoate, Vilanterol trifenatate (Relvar Ellipta) [Concomitant]
     Indication: Asthma
     Dosage: 184/722 MCG
     Route: 055
  4. SPIRIVA [Concomitant]
     Active Substance: TIOTROPIUM BROMIDE MONOHYDRATE
     Indication: Asthma
     Route: 055
  5. Paroxetine hydrochloride (Paronex) [Concomitant]
     Indication: Mixed anxiety and depressive disorder
  6. Tenofovir alafenamide fumarate, Emtricitabine (Descovy) [Concomitant]
     Indication: HIV infection
     Dosage: 200/25 MG
     Route: 048
  7. ISENTRESS [Concomitant]
     Active Substance: RALTEGRAVIR POTASSIUM
     Indication: HIV infection
     Route: 048

REACTIONS (5)
  - HIV infection [Not Recovered/Not Resolved]
  - Hepatitis C [Unknown]
  - Asthma [Not Recovered/Not Resolved]
  - Drug ineffective [Not Recovered/Not Resolved]
  - Mixed anxiety and depressive disorder [Not Recovered/Not Resolved]

NARRATIVE: CASE EVENT DATE: 20220501
